FAERS Safety Report 19104581 (Version 1)
Quarter: 2021Q2

REPORT INFORMATION
  Report Type: Spontaneous
  Country: AU (occurrence: AU)
  Receive Date: 20210408
  Receipt Date: 20210408
  Transmission Date: 20210717
  Serious: No
  Sender: FDA-Public Use
  Company Number: AU-LUPIN PHARMACEUTICALS INC.-2021-04330

PATIENT
  Age: 50 Year
  Sex: Female

DRUGS (4)
  1. METRONIDAZOLE. [Concomitant]
     Active Substance: METRONIDAZOLE
     Indication: GRANULOMATOUS ROSACEA
     Dosage: UNK (STOPPED)
     Route: 061
  2. MINOCYCLINE [Suspect]
     Active Substance: MINOCYCLINE HYDROCHLORIDE
     Indication: GRANULOMATOUS ROSACEA
     Dosage: 50 MILLIGRAM, BID
     Route: 065
  3. BRIMONIDINE [Concomitant]
     Active Substance: BRIMONIDINE TARTRATE
     Indication: GRANULOMATOUS ROSACEA
     Dosage: UNK (STOPPED)
     Route: 065
  4. IVERMECTIN. [Concomitant]
     Active Substance: IVERMECTIN
     Indication: GRANULOMATOUS ROSACEA
     Dosage: UNK (STOPPED)
     Route: 065

REACTIONS (1)
  - Headache [Unknown]
